FAERS Safety Report 17071353 (Version 1)
Quarter: 2019Q4

REPORT INFORMATION
  Report Type: Spontaneous
  Country: GB (occurrence: GB)
  Receive Date: 20191125
  Receipt Date: 20191125
  Transmission Date: 20200122
  Serious: Yes (Hospitalization)
  Sender: FDA-Public Use
  Company Number: GB-ROCHE-2482757

PATIENT
  Sex: Male

DRUGS (2)
  1. ACTILYSE [Suspect]
     Active Substance: ALTEPLASE
     Indication: THROMBOLYSIS
     Route: 065
  2. HEPARIN LEO [Suspect]
     Active Substance: HEPARIN SODIUM
     Indication: AORTIC THROMBOSIS
     Route: 042

REACTIONS (2)
  - Vascular pseudoaneurysm [Recovered/Resolved]
  - Thalamus haemorrhage [Recovered/Resolved]
